FAERS Safety Report 6013930-4 (Version None)
Quarter: 2008Q4

REPORT INFORMATION
  Report Type: 
  Country: None (occurrence: None)
  Receive Date: 20081219
  Receipt Date: 20081215
  Transmission Date: 20090506
  Serious: Yes (Life-Threatening, Hospitalization)
  Sender: FDA-Public Use
  Company Number: AU-MERCK-0812AUS00247

PATIENT
  Age: 75 Year
  Sex: Male

DRUGS (3)
  1. ZOCOR [Suspect]
     Route: 065
     Dates: end: 20080401
  2. ROSUVASTATIN CALCIUM [Suspect]
     Indication: METABOLIC DISORDER
     Route: 048
     Dates: end: 20080401
  3. GEMFIBROZIL [Suspect]
     Route: 065
     Dates: end: 20080401

REACTIONS (11)
  - ABDOMINAL PAIN [None]
  - CHROMATURIA [None]
  - CONSTIPATION [None]
  - DECREASED APPETITE [None]
  - HEPATIC FUNCTION ABNORMAL [None]
  - MEDICATION ERROR [None]
  - MYALGIA [None]
  - MYOGLOBINURIA [None]
  - PRURITUS [None]
  - RENAL FAILURE ACUTE [None]
  - RHABDOMYOLYSIS [None]
